FAERS Safety Report 6303208-3 (Version None)
Quarter: 2009Q3

REPORT INFORMATION
  Report Type: 
  Country: None (occurrence: None)
  Receive Date: 20090810
  Receipt Date: 20090112
  Transmission Date: 20100115
  Serious: No
  Sender: FDA-Public Use
  Company Number: A0763243A

PATIENT
  Age: 79 Year
  Sex: Female

DRUGS (18)
  1. PAXIL [Suspect]
     Indication: ANXIETY
     Dosage: 20MG PER DAY
     Route: 048
     Dates: start: 20010101
  2. PAROXETINE HCL [Suspect]
     Indication: ANXIETY
     Dosage: 10MG PER DAY
     Dates: start: 20040101
  3. VITAMIN B COMPLEX CAP [Suspect]
  4. ALTACE [Concomitant]
  5. ASPIRIN [Concomitant]
  6. PRAVASTATIN [Concomitant]
  7. ZYRTEC [Concomitant]
  8. PRILOSEC [Concomitant]
  9. COSOPT [Concomitant]
  10. XALATAN [Concomitant]
  11. ALPHAGAN [Concomitant]
  12. FISH OIL SUPPLEMENTS [Concomitant]
  13. GLUCOSAMINE CHONDROITIN [Concomitant]
  14. CALTRATE [Concomitant]
  15. MULTIVITAMIN [Concomitant]
  16. Q-10 [Concomitant]
  17. FOLIC ACID [Concomitant]
  18. VITAMIN B-12 [Concomitant]

REACTIONS (3)
  - INTRAOCULAR PRESSURE INCREASED [None]
  - MUSCULAR WEAKNESS [None]
  - SOMNOLENCE [None]
